FAERS Safety Report 8130288-5 (Version None)
Quarter: 2012Q1

REPORT INFORMATION
  Report Type: 
  Country: None (occurrence: None)
  Receive Date: 20120210
  Receipt Date: 20120207
  Transmission Date: 20120608
  Serious: Yes (Death, Hospitalization)
  Sender: FDA-Public Use
  Company Number: PHHY2012BR010552

PATIENT
  Sex: Female

DRUGS (4)
  1. CITALOPRAM HYDROBROMIDE [Concomitant]
     Indication: DEMENTIA ALZHEIMER'S TYPE
  2. EXELON [Suspect]
     Indication: DEMENTIA ALZHEIMER'S TYPE
     Dosage: 4.6 MG\24H (9MG/5CM2 )
     Route: 062
  3. AMIODARONE HYDROCHLORIDE [Concomitant]
     Dosage: 1 DF A DAY
  4. RISPERIDONE [Concomitant]
     Indication: DEMENTIA ALZHEIMER'S TYPE

REACTIONS (8)
  - PYREXIA [None]
  - SEPSIS [None]
  - CARDIOPULMONARY FAILURE [None]
  - NASOPHARYNGITIS [None]
  - DEMENTIA ALZHEIMER'S TYPE [None]
  - CARDIAC DISORDER [None]
  - PNEUMONIA [None]
  - ATRIOVENTRICULAR BLOCK [None]
